FAERS Safety Report 14169439 (Version 1)
Quarter: 2017Q4

REPORT INFORMATION
  Report Type: Spontaneous
  Country: US (occurrence: US)
  Receive Date: 20171107
  Receipt Date: 20171107
  Transmission Date: 20180321
  Serious: Yes (Other)
  Sender: FDA-Public Use
  Company Number: None

PATIENT
  Age: 70 Year
  Sex: Female

DRUGS (1)
  1. H2O2 FOOD GRADE HYDROGEN PEROXIDE 3% [Suspect]
     Active Substance: HYDROGEN PEROXIDE
     Indication: ROUTINE HEALTH MAINTENANCE

REACTIONS (3)
  - Intercepted drug administration error [None]
  - Manufacturing product shipping issue [None]
  - Drug dispensing error [None]

NARRATIVE: CASE EVENT DATE: 20171025
